FAERS Safety Report 6498322-6 (Version None)
Quarter: 2009Q4

REPORT INFORMATION
  Report Type: 
  Country: None (occurrence: None)
  Receive Date: 20091215
  Receipt Date: 20091203
  Transmission Date: 20100525
  Serious: Yes (Hospitalization)
  Sender: FDA-Public Use
  Company Number: JP-PFIZER INC-2009310162

PATIENT
  Age: 75 Year
  Sex: Female
  Weight: 45.6 kg

DRUGS (2)
  1. SUNITINIB MALATE [Suspect]
     Indication: RENAL CELL CARCINOMA
     Dosage: 25 MG, 1X/DAY
     Route: 048
     Dates: start: 20090903, end: 20091026
  2. NORVASC [Concomitant]
     Indication: HYPERTENSION
     Dosage: UNK
     Route: 048
     Dates: start: 20090907

REACTIONS (2)
  - DECREASED APPETITE [None]
  - PLEURAL EFFUSION [None]
